FAERS Safety Report 17768210 (Version 1)
Quarter: 2020Q2

REPORT INFORMATION
  Report Type: Spontaneous
  Country: US (occurrence: US)
  Receive Date: 20200511
  Receipt Date: 20200511
  Transmission Date: 20200714
  Serious: No
  Sender: FDA-Public Use
  Company Number: US-TEVA-2020-US-1233445

PATIENT
  Age: 69 Year
  Sex: Male

DRUGS (1)
  1. FEXOFENADINE 60 MG 425 [Suspect]
     Active Substance: FEXOFENADINE HYDROCHLORIDE
     Indication: PRODUCT USED FOR UNKNOWN INDICATION
     Route: 048
     Dates: start: 202004

REACTIONS (2)
  - Product administered to patient of inappropriate age [Unknown]
  - Somnolence [Unknown]

NARRATIVE: CASE EVENT DATE: 202004
